FAERS Safety Report 8616612-5 (Version None)
Quarter: 2012Q3

REPORT INFORMATION
  Report Type: 
  Country: None (occurrence: None)
  Receive Date: 20120823
  Receipt Date: 20120821
  Transmission Date: 20120928
  Serious: No
  Sender: FDA-Public Use
  Company Number: US-TEVA-355319USA

PATIENT
  Sex: Female
  Weight: 52.21 kg

DRUGS (3)
  1. PLAN B ONE-STEP [Suspect]
     Indication: POST COITAL CONTRACEPTION
     Dosage: 1.5 MILLIGRAM DAILY;
     Route: 048
     Dates: start: 20120812, end: 20120812
  2. MUCINEX [Concomitant]
     Indication: NASOPHARYNGITIS
     Route: 048
  3. ZITHROMAX [Concomitant]
     Indication: NASOPHARYNGITIS
     Route: 048

REACTIONS (3)
  - ABDOMINAL PAIN UPPER [None]
  - VOMITING [None]
  - NAUSEA [None]
